FAERS Safety Report 6086182-7 (Version None)
Quarter: 2009Q1

REPORT INFORMATION
  Report Type: 
  Country: None (occurrence: None)
  Receive Date: 20090217
  Receipt Date: 20090217
  Transmission Date: 20090719
  Serious: Yes (Disabling, Other)
  Sender: FDA-Public Use
  Company Number: None

PATIENT
  Age: 44 Year
  Sex: Female
  Weight: 59.8748 kg

DRUGS (1)
  1. DEXAMETHASONE [Suspect]
     Indication: DRY EYE
     Dosage: 1 DROP EACH EYE 3 TIMES A DAY OPHTHALMIC
     Route: 047
     Dates: start: 20080901, end: 20090102

REACTIONS (8)
  - BACTERIAL INFECTION [None]
  - CHILLS [None]
  - DIZZINESS [None]
  - GLAUCOMA [None]
  - MENSTRUAL DISORDER [None]
  - MOOD SWINGS [None]
  - VIRAL INFECTION [None]
  - WEIGHT INCREASED [None]
